FAERS Safety Report 9529549 (Version 1)
Quarter: 2013Q3

REPORT INFORMATION
  Report Type: Spontaneous
  Country: US (occurrence: US)
  Receive Date: 20130917
  Receipt Date: 20130917
  Transmission Date: 20140515
  Serious: No
  Sender: FDA-Public Use
  Company Number: US-TEVA-432050USA

PATIENT
  Age: 82 Year
  Sex: Female
  Weight: 49.03 kg

DRUGS (2)
  1. QNASL [Suspect]
     Indication: RHINORRHOEA
     Dates: start: 20130905, end: 20130909
  2. QNASL [Suspect]
     Indication: HYPERSENSITIVITY

REACTIONS (2)
  - Rash generalised [Not Recovered/Not Resolved]
  - Pruritus [Not Recovered/Not Resolved]
